FAERS Safety Report 14593827 (Version 1)
Quarter: 2018Q1

REPORT INFORMATION
  Report Type: Report from Study
  Country: PL (occurrence: PL)
  Receive Date: 20180302
  Receipt Date: 20180302
  Transmission Date: 20180509
  Serious: Yes (Hospitalization)
  Sender: FDA-Public Use
  Company Number: PL-EISAI MEDICAL RESEARCH-EC-2018-036582

PATIENT
  Age: 67 Year
  Sex: Male
  Weight: 68 kg

DRUGS (9)
  1. LENVATINIB [Suspect]
     Active Substance: LENVATINIB
     Indication: RENAL CELL CARCINOMA
     Dosage: BLINDED DOSAGE
     Route: 048
     Dates: start: 20171108
  2. LYRICA [Concomitant]
     Active Substance: PREGABALIN
  3. MEDROL [Concomitant]
     Active Substance: METHYLPREDNISOLONE
  4. CITAXIN [Concomitant]
  5. DORETA [Concomitant]
     Active Substance: ACETAMINOPHEN\TRAMADOL HYDROCHLORIDE
  6. PENESTER [Concomitant]
  7. LOPERAMIDE [Concomitant]
     Active Substance: LOPERAMIDE
  8. OMSAL [Concomitant]
     Active Substance: TAMSULOSIN HYDROCHLORIDE
  9. EVEROLIMUS. [Suspect]
     Active Substance: EVEROLIMUS
     Indication: RENAL CELL CARCINOMA
     Route: 048
     Dates: start: 20171108

REACTIONS (1)
  - Asthenia [Recovering/Resolving]

NARRATIVE: CASE EVENT DATE: 20180219
